FAERS Safety Report 7985497-2 (Version None)
Quarter: 2011Q4

REPORT INFORMATION
  Report Type: 
  Country: None (occurrence: None)
  Receive Date: 20111214
  Receipt Date: 20111129
  Transmission Date: 20120403
  Serious: Yes (Death)
  Sender: FDA-Public Use
  Company Number: B0767602A

PATIENT
  Age: 46 Year
  Sex: Female

DRUGS (3)
  1. LAMOTRIGINE [Suspect]
     Indication: EPILEPSY
     Dosage: 100 MG
  2. PHENYTOIN [Concomitant]
  3. PROMETHAZINE [Concomitant]

REACTIONS (1)
  - SUDDEN DEATH [None]
